FAERS Safety Report 20071106 (Version 1)
Quarter: 2021Q4

REPORT INFORMATION
  Report Type: Report from Study
  Country: CA (occurrence: CA)
  Receive Date: 20211115
  Receipt Date: 20211115
  Transmission Date: 20220303
  Serious: Yes (Hospitalization, Other)
  Sender: FDA-Public Use
  Company Number: CA-HLS-202006211

PATIENT
  Age: 74 Year
  Sex: Male
  Weight: 67 kg

DRUGS (16)
  1. CLOZARIL [Suspect]
     Active Substance: CLOZAPINE
     Indication: Product used for unknown indication
     Route: 048
     Dates: start: 20090128, end: 20180409
  2. CLOZARIL [Suspect]
     Active Substance: CLOZAPINE
     Indication: Product used for unknown indication
     Dosage: TOTAL DOSE 225MG : 100MG =2 TAB AT BEDTIME +25MG =1 TAB AT BEDTIME ?START DATE: 24-AUG-2021
     Route: 048
  3. ARIPIPRAZOLE [Concomitant]
     Active Substance: ARIPIPRAZOLE
     Dosage: EVERY MORNING
     Route: 048
     Dates: start: 20211026
  4. FENOFIBRATE [Concomitant]
     Active Substance: FENOFIBRATE
     Route: 048
     Dates: start: 20211026
  5. DIVALPROEX SODIUM [Concomitant]
     Active Substance: DIVALPROEX SODIUM
     Dosage: ENTERIC TAB, TWICE A DAY
     Route: 048
     Dates: start: 20211026
  6. DICLOFENAC [Concomitant]
     Active Substance: DICLOFENAC
     Dosage: 1 APPLICATION TWICE A DAY TO ELBOWS, FINGER, JOINTS AND HIPS.
     Route: 061
     Dates: start: 20211026
  7. Calcium elemental [Concomitant]
     Dosage: 500 MG AT NOON
     Route: 048
     Dates: start: 20211026
  8. Atropine eye drop [Concomitant]
     Dosage: 2 DROP SUBLINGUAL TWICE A DAY
     Route: 060
     Dates: start: 20211026
  9. ACETAMINOPHEN [Concomitant]
     Active Substance: ACETAMINOPHEN
     Dosage: 350TO 650 MG EVERY 4 HOUR AS NEEDED FOR PAIN
     Route: 048
     Dates: start: 20211026
  10. VITAMIN D [Concomitant]
     Active Substance: VITAMIN D NOS
     Dosage: 2000 UNITS = 2 TAB AT NOON
     Route: 048
     Dates: start: 20211026
  11. VITAMIN B12 [Concomitant]
     Active Substance: CYANOCOBALAMIN
     Dosage: EVERY MORNING
     Route: 048
     Dates: start: 20211026
  12. VITAMIN B1 [Concomitant]
     Active Substance: THIAMINE HYDROCHLORIDE
     Dosage: EVERY MORNING
     Route: 048
     Dates: start: 20211026
  13. TAMSULOSIN [Concomitant]
     Active Substance: TAMSULOSIN
     Dosage: AT BEDTIME
     Route: 048
     Dates: start: 20211026
  14. SENNOSIDES [Concomitant]
     Active Substance: SENNOSIDES
     Dosage: 2 TAB AT BEDTIME.
     Route: 048
     Dates: start: 20211026
  15. POLYETHYLENE GLYCOL [Concomitant]
     Active Substance: POLYETHYLENE GLYCOL
     Dosage: EVERY MON, WED, FRI
     Route: 048
     Dates: start: 20211026
  16. LEVOTHYROXINE [Concomitant]
     Active Substance: LEVOTHYROXINE
     Dosage: EVERY MORNING
     Route: 048
     Dates: start: 20211026

REACTIONS (12)
  - Neutropenia [Unknown]
  - Delusion [Unknown]
  - Cognitive disorder [Unknown]
  - Nasopharyngitis [Unknown]
  - Psychiatric decompensation [Unknown]
  - Neutrophil count decreased [Unknown]
  - Platelet count decreased [Unknown]
  - White blood cell count decreased [Unknown]
  - Mental impairment [Unknown]
  - Normochromic normocytic anaemia [Unknown]
  - Treatment noncompliance [Recovered/Resolved]
  - Leukopenia [Unknown]

NARRATIVE: CASE EVENT DATE: 20180407
